FAERS Safety Report 7527115-3 (Version None)
Quarter: 2011Q2

REPORT INFORMATION
  Report Type: 
  Country: None (occurrence: None)
  Receive Date: 20110607
  Receipt Date: 20110524
  Transmission Date: 20111010
  Serious: Yes (Death)
  Sender: FDA-Public Use
  Company Number: US-MYLANLABS-2011S1011075

PATIENT
  Sex: Female

DRUGS (3)
  1. CARBOPLATIN [Suspect]
     Indication: OVARIAN CANCER
     Dosage: AUC 6
     Route: 042
  2. DOCETAXEL [Suspect]
     Indication: OVARIAN CANCER
     Route: 042
  3. ERLOTINIB HYDROCHLORIDE [Suspect]
     Indication: OVARIAN CANCER
     Dosage: INITIALLY 50 MG/DAY; UPTITRATED. PLANNED MAINTENANCE DOSAGE WAS 150 MG/DAY.
     Route: 048

REACTIONS (2)
  - CLOSTRIDIAL INFECTION [None]
  - ENTEROCOLITIS BACTERIAL [None]
